FAERS Safety Report 25963526 (Version 1)
Quarter: 2025Q4

REPORT INFORMATION
  Report Type: Spontaneous
  Country: US (occurrence: US)
  Receive Date: 20251027
  Receipt Date: 20251027
  Transmission Date: 20260118
  Serious: Yes (Other)
  Sender: VERTEX
  Company Number: US-VERTEX PHARMACEUTICALS-2025-017707

PATIENT
  Age: 42 Year
  Sex: Female

DRUGS (1)
  1. TRIKAFTA [Suspect]
     Active Substance: ELEXACAFTOR\IVACAFTOR\TEZACAFTOR
     Indication: Cystic fibrosis
     Dosage: UNKNOWN DOSAGE REGIMEN
     Route: 048
     Dates: start: 2020

REACTIONS (9)
  - Brain neoplasm benign [Unknown]
  - Weight increased [Unknown]
  - Insomnia [Unknown]
  - Anxiety [Unknown]
  - Brain fog [Unknown]
  - Memory impairment [Unknown]
  - Nephrolithiasis [Unknown]
  - Cyst [Unknown]
  - Endometriosis [Unknown]
